FAERS Safety Report 4869542-9 (Version None)
Quarter: 2005Q4

REPORT INFORMATION
  Report Type: 
  Country: None (occurrence: None)
  Receive Date: 20051227
  Receipt Date: 20051213
  Transmission Date: 20060501
  Serious: Yes (Death, Life-Threatening, Hospitalization)
  Sender: FDA-Public Use
  Company Number: FR-JNJFOC-20051102673

PATIENT
  Age: 83 Year
  Sex: Female
  Weight: 52 kg

DRUGS (6)
  1. REMINYL (GALANTAMINE HBR) TABLETS [Suspect]
     Indication: DEMENTIA ALZHEIMER'S TYPE
     Dosage: 4 MG, 2 IN 1 DAY, ORAL
     Route: 048
     Dates: start: 20050501, end: 20051020
  2. ACETAMINOPHEN [Concomitant]
  3. EFFEXOR [Concomitant]
  4. ASPIRIN [Concomitant]
  5. COZAAR [Concomitant]
  6. VALIUM [Concomitant]

REACTIONS (10)
  - ATRIOVENTRICULAR BLOCK COMPLETE [None]
  - BLOOD PRESSURE INCREASED [None]
  - BUNDLE BRANCH BLOCK RIGHT [None]
  - CARDIAC ARREST [None]
  - LOSS OF CONSCIOUSNESS [None]
  - MALAISE [None]
  - REFUSAL OF TREATMENT BY RELATIVE [None]
  - STASIS DERMATITIS [None]
  - TORSADE DE POINTES [None]
  - VOMITING [None]
